FAERS Safety Report 13676715 (Version 3)
Quarter: 2017Q3

REPORT INFORMATION
  Report Type: Spontaneous
  Country: US (occurrence: US)
  Receive Date: 20170622
  Receipt Date: 20170725
  Transmission Date: 20171127
  Serious: No
  Sender: FDA-Public Use
  Company Number: US-PFIZER INC-2017271288

PATIENT
  Age: 53 Year
  Sex: Female

DRUGS (1)
  1. XELJANZ [Suspect]
     Active Substance: TOFACITINIB CITRATE
     Indication: RHEUMATOID ARTHRITIS
     Dosage: 5 MG, 2X/DAY
     Route: 048
     Dates: start: 201705, end: 201705

REACTIONS (7)
  - Diarrhoea [Unknown]
  - Gastroenteritis viral [Unknown]
  - Fatigue [Unknown]
  - Oral disorder [Unknown]
  - Dyspnoea [Unknown]
  - Feeling hot [Unknown]
  - Weight increased [Unknown]

NARRATIVE: CASE EVENT DATE: 201705
